FAERS Safety Report 10757852 (Version 1)
Quarter: 2015Q1

REPORT INFORMATION
  Report Type: Spontaneous
  Country: US (occurrence: None)
  Receive Date: 20150202
  Receipt Date: 20150202
  Transmission Date: 20150721
  Serious: Yes (Hospitalization)
  Sender: FDA-Public Use
  Company Number: None

PATIENT
  Age: 87 Year
  Sex: Female
  Weight: 99.3 kg

DRUGS (21)
  1. HUMALOG [Suspect]
     Active Substance: INSULIN LISPRO
     Indication: DIABETES MELLITUS
     Dosage: 100UNITS/ML  TID SQ?CHRONIC
     Route: 058
  2. LISINOPRIL. [Suspect]
     Active Substance: LISINOPRIL
  3. PHENERGAN [Concomitant]
     Active Substance: PROMETHAZINE HYDROCHLORIDE
  4. TOVIAZ [Suspect]
     Active Substance: FESOTERODINE FUMARATE
  5. CIPRO [Concomitant]
     Active Substance: CIPROFLOXACIN HYDROCHLORIDE
  6. MULTAQ [Concomitant]
     Active Substance: DRONEDARONE
  7. AMARYL [Suspect]
     Active Substance: GLIMEPIRIDE
     Indication: DIABETES MELLITUS
     Dosage: QAM?CHRONIC
     Route: 048
  8. AMLODIPINE [Concomitant]
     Active Substance: AMLODIPINE BESYLATE
  9. NORCO [Concomitant]
     Active Substance: ACETAMINOPHEN\HYDROCODONE BITARTRATE
  10. IMODIUM [Concomitant]
     Active Substance: LOPERAMIDE HYDROCHLORIDE
  11. GAUIFENESIN [Concomitant]
  12. KLOR-CON [Concomitant]
     Active Substance: POTASSIUM CHLORIDE
  13. ATARAX [Concomitant]
     Active Substance: HYDROXYZINE\HYDROXYZINE HYDROCHLORIDE
  14. METHYLSALICLATE [Concomitant]
  15. OSCAL [Concomitant]
     Active Substance: CALCIUM CARBONATE
  16. LIDODERM [Concomitant]
     Active Substance: LIDOCAINE
  17. ASA [Concomitant]
     Active Substance: ASPIRIN
  18. LEXAPRO [Concomitant]
     Active Substance: ESCITALOPRAM OXALATE
  19. LASIX [Concomitant]
     Active Substance: FUROSEMIDE
  20. ZESTRIL [Concomitant]
     Active Substance: LISINOPRIL
  21. BACTRIM [Suspect]
     Active Substance: SULFAMETHOXAZOLE\TRIMETHOPRIM

REACTIONS (6)
  - Mental disorder [None]
  - Nausea [None]
  - Hypophagia [None]
  - Renal injury [None]
  - Dehydration [None]
  - Hypoglycaemia [None]

NARRATIVE: CASE EVENT DATE: 20140903
